FAERS Safety Report 17066871 (Version 5)
Quarter: 2020Q2

REPORT INFORMATION
  Report Type: Spontaneous
  Country: US (occurrence: US)
  Receive Date: 20191122
  Receipt Date: 20200512
  Transmission Date: 20200713
  Serious: Yes (Other)
  Sender: FDA-Public Use
  Company Number: US-PFIZER INC-2019505413

PATIENT
  Age: 76 Year
  Sex: Female

DRUGS (3)
  1. SOMAVERT [Suspect]
     Active Substance: PEGVISOMANT
     Indication: ACROMEGALY
     Dosage: 10 MG, DAILY(INJECT 10 MG UNDER THE SKIN)
  2. SOMAVERT [Suspect]
     Active Substance: PEGVISOMANT
     Indication: GIGANTISM
     Dosage: 10 MG, DAILY(INJECT 10 MG UNDER THE SKIN)
     Route: 058
     Dates: start: 20200107
  3. SOMAVERT [Suspect]
     Active Substance: PEGVISOMANT
     Indication: PITUITARY TUMOUR BENIGN
     Dosage: 10 MG, DAILY(10 MG UNDER THE SKIN)

REACTIONS (11)
  - Blood pressure increased [Unknown]
  - Tremor [Unknown]
  - Crying [Unknown]
  - Swollen tongue [Unknown]
  - Near death experience [Unknown]
  - Nasal disorder [Unknown]
  - Disturbance in attention [Unknown]
  - Feeling abnormal [Unknown]
  - Balance disorder [Unknown]
  - Dizziness [Unknown]
  - Insulin-like growth factor increased [Unknown]
